FAERS Safety Report 16010428 (Version 1)
Quarter: 2019Q1

REPORT INFORMATION
  Report Type: Spontaneous
  Country: DE (occurrence: DE)
  Receive Date: 20190227
  Receipt Date: 20190227
  Transmission Date: 20190418
  Serious: Yes (Other)
  Sender: FDA-Public Use
  Company Number: DE-ROCHE-2217649

PATIENT
  Sex: Female

DRUGS (4)
  1. RITUXIMAB. [Suspect]
     Active Substance: RITUXIMAB
     Indication: WARM TYPE HAEMOLYTIC ANAEMIA
     Dosage: 8 ADMINISTRATIONS
     Route: 065
     Dates: start: 2006, end: 2010
  2. CICLOSPORIN A [Concomitant]
     Active Substance: CYCLOSPORINE
  3. IMMUNOGLOBULINE [Concomitant]
     Active Substance: HUMAN IMMUNOGLOBULIN G
     Route: 042
  4. PREDNISOLONE. [Concomitant]
     Active Substance: PREDNISOLONE

REACTIONS (6)
  - Anaphylactic reaction [Unknown]
  - Intentional product use issue [Unknown]
  - Haemorrhage [Unknown]
  - Acquired haemophilia [Not Recovered/Not Resolved]
  - Skin papilloma [Unknown]
  - Off label use [Unknown]

NARRATIVE: CASE EVENT DATE: 2016
